FAERS Safety Report 7512384-6 (Version None)
Quarter: 2011Q2

REPORT INFORMATION
  Report Type: 
  Country: None (occurrence: None)
  Receive Date: 20110520
  Receipt Date: 20110512
  Transmission Date: 20111010
  Serious: Yes (Hospitalization)
  Sender: FDA-Public Use
  Company Number: GER/GER/11/0018285

PATIENT
  Age: 46 Year
  Sex: Male

DRUGS (7)
  1. GABANENTIN (GABAPENTIN) [Concomitant]
  2. CARBAMAZEPINE [Suspect]
     Indication: PRODUCT USED FOR UNKNOWN INDICATION
     Dates: start: 20100801
  3. KEPPRA [Concomitant]
  4. ERGENYL CHRONO 500(ERGENYL CHRONO) [Concomitant]
  5. CITALOPRAM HYDROBROMIDE [Suspect]
     Indication: PRODUCT USED FOR UNKNOWN INDICATION
     Dates: start: 20100601
  6. BOTULINUM TOXIN TYPE A [Suspect]
     Indication: PRODUCT USED FOR UNKNOWN INDICATION
     Dates: start: 20090101
  7. MIRTAZAPINE [Concomitant]

REACTIONS (3)
  - MYOCLONUS [None]
  - AMNESTIC DISORDER [None]
  - MEMORY IMPAIRMENT [None]
